FAERS Safety Report 16738488 (Version 2)
Quarter: 2019Q3

REPORT INFORMATION
  Report Type: Spontaneous
  Country: US (occurrence: US)
  Receive Date: 20190826
  Receipt Date: 20190827
  Transmission Date: 20191005
  Serious: No
  Sender: FDA-Public Use
  Company Number: US-JNJFOC-20190827390

PATIENT
  Sex: Female
  Weight: 61.29 kg

DRUGS (2)
  1. WOMENS ROGAINE UNSCENTED [Suspect]
     Active Substance: MINOXIDIL
     Dosage: HALF CAPFUL
     Route: 061
  2. WOMENS ROGAINE UNSCENTED [Suspect]
     Active Substance: MINOXIDIL
     Indication: ALOPECIA
     Dosage: HALF CAPFUL ONCE DAILY
     Route: 061

REACTIONS (2)
  - Inappropriate schedule of product administration [Recovered/Resolved]
  - Alopecia [Recovered/Resolved]
